FAERS Safety Report 23758011 (Version 1)
Quarter: 2024Q2

REPORT INFORMATION
  Report Type: Other
  Country: CN (occurrence: CN)
  Receive Date: 20240418
  Receipt Date: 20240418
  Transmission Date: 20240716
  Serious: Yes (Hospitalization)
  Sender: FDA-Public Use
  Company Number: CN-PARATEK PHARMACEUTICALS, INC.-2024PTK00296

PATIENT
  Age: 52 Year
  Sex: Female
  Weight: 57 kg

DRUGS (2)
  1. NUZYRA [Suspect]
     Active Substance: OMADACYCLINE
     Indication: Bacteraemia
     Dosage: 50 MG, Q12H
     Route: 041
     Dates: start: 20240306, end: 20240306
  2. NUZYRA [Suspect]
     Active Substance: OMADACYCLINE
     Indication: Acinetobacter infection
     Dosage: 50 MG, QD
     Route: 041
     Dates: start: 20240307, end: 20240330

REACTIONS (2)
  - Blood fibrinogen decreased [Recovered/Resolved]
  - Off label use [Recovered/Resolved]

NARRATIVE: CASE EVENT DATE: 20240301
